FAERS Safety Report 26122431 (Version 1)
Quarter: 2025Q4

REPORT INFORMATION
  Report Type: Report from Study
  Country: CA (occurrence: CA)
  Receive Date: 20251204
  Receipt Date: 20251204
  Transmission Date: 20260117
  Serious: Yes (Hospitalization, Other)
  Sender: ABBVIE
  Company Number: CA-ABBVIE-6571380

PATIENT
  Age: 32 Year
  Sex: Female

DRUGS (4)
  1. SKYRIZI [Suspect]
     Active Substance: RISANKIZUMAB-RZAA
     Indication: Crohn^s disease
     Route: 058
  2. RINVOQ [Suspect]
     Active Substance: UPADACITINIB
     Indication: Crohn^s disease
     Route: 048
  3. PREDNISONE [Concomitant]
     Active Substance: PREDNISONE
     Indication: Product used for unknown indication
  4. SKYRIZI [Suspect]
     Active Substance: RISANKIZUMAB-RZAA
     Indication: Crohn^s disease
     Route: 042

REACTIONS (15)
  - Anal abscess [Not Recovered/Not Resolved]
  - Inflammatory bowel disease [Unknown]
  - Laparotomy [Unknown]
  - Ileocaecal resection [Unknown]
  - Small intestinal resection [Unknown]
  - Proctalgia [Recovered/Resolved]
  - Abdominal pain [Unknown]
  - Proctalgia [Unknown]
  - Anal fistula [Not Recovered/Not Resolved]
  - Rectal abscess [Unknown]
  - Hepatic infarction [Not Recovered/Not Resolved]
  - Intestinal dilatation [Unknown]
  - Pneumoperitoneum [Unknown]
  - Intra-abdominal fluid collection [Unknown]
  - Colitis [Unknown]

NARRATIVE: CASE EVENT DATE: 20240704
